FAERS Safety Report 14994901 (Version 3)
Quarter: 2018Q3

REPORT INFORMATION
  Report Type: Spontaneous
  Country: US (occurrence: US)
  Receive Date: 20180611
  Receipt Date: 20180809
  Transmission Date: 20181010
  Serious: Yes (Other)
  Sender: FDA-Public Use
  Company Number: US-PFIZER INC-2018235603

PATIENT
  Age: 74 Year
  Sex: Female
  Weight: 67.57 kg

DRUGS (15)
  1. METHOTREXATE SODIUM. [Suspect]
     Active Substance: METHOTREXATE SODIUM
     Indication: ARTHROPATHY
     Dosage: INJECTABLE
  2. ASPIRIN. [Concomitant]
     Active Substance: ASPIRIN
     Dosage: 81 MG, 1X/DAY [QD]
     Route: 048
  3. FISH OIL [Concomitant]
     Active Substance: FISH OIL
     Dosage: 2000 MG, 1X/DAY [2 CAPS PO QD]
     Route: 048
  4. TURMERIC CURCUMIN [Concomitant]
     Active Substance: HERBALS\TURMERIC
     Dosage: 2 CAPS QD
     Route: 048
  5. BOSWELLIA SERRATA [Concomitant]
     Dosage: 1 CAP QD
     Route: 048
  6. METOPROLOL SUCCINATE. [Concomitant]
     Active Substance: METOPROLOL SUCCINATE
     Dosage: 25 MG, 1X/DAY [QD]
     Route: 048
  7. LATANOPROST. [Concomitant]
     Active Substance: LATANOPROST
     Dosage: UNK
  8. UBQH [Concomitant]
     Dosage: 100 MG, DAILY
     Route: 048
  9. VITAMIN C [Concomitant]
     Active Substance: ASCORBIC ACID
     Dosage: 1000 MG, 1X/DAY [QD]
     Route: 048
  10. B?PLEX [Concomitant]
     Dosage: 1 TAB QD
     Route: 048
  11. ATORVASTATIN [Concomitant]
     Active Substance: ATORVASTATIN
     Dosage: 20 MG, 1X/DAY [QD]
     Route: 048
  12. VITAMIN D3 [Concomitant]
     Active Substance: CHOLECALCIFEROL
     Dosage: 5000 IU, 1X/DAY [QD]
     Route: 048
  13. FOLIC ACID. [Concomitant]
     Active Substance: FOLIC ACID
     Dosage: 5 TABS DAILY
     Route: 048
  14. METHOTREXATE. [Suspect]
     Active Substance: METHOTREXATE
     Indication: ARTHROPATHY
     Dosage: 15 MG, WEEKLY
     Route: 048
     Dates: start: 20170802
  15. ACETAMINOPHEN?CODEINE [Concomitant]
     Active Substance: ACETAMINOPHEN\CODEINE PHOSPHATE
     Dosage: ([ACETAMINOPHEN 300MG]?[CODEINE 30MG] [0.5 TAB Q 4HRS PRN])
     Route: 048

REACTIONS (20)
  - Musculoskeletal stiffness [Unknown]
  - Alopecia [Not Recovered/Not Resolved]
  - Peripheral swelling [Unknown]
  - Night sweats [Unknown]
  - Depression [Unknown]
  - Joint swelling [Not Recovered/Not Resolved]
  - Cough [Unknown]
  - Weight increased [Unknown]
  - Joint warmth [Unknown]
  - Dyspnoea [Unknown]
  - Joint effusion [Unknown]
  - Deafness [Unknown]
  - Glaucoma [Unknown]
  - Drug effect incomplete [Unknown]
  - Balance disorder [Unknown]
  - Fatigue [Unknown]
  - Asthma [Unknown]
  - Synovial disorder [Unknown]
  - Arthralgia [Not Recovered/Not Resolved]
  - Musculoskeletal discomfort [Unknown]
